FAERS Safety Report 9431315 (Version 2)
Quarter: 2013Q3

REPORT INFORMATION
  Report Type: Spontaneous
  Country: FR (occurrence: FR)
  Receive Date: 20130730
  Receipt Date: 20130923
  Transmission Date: 20140515
  Serious: Yes (Life-Threatening, Hospitalization, Other)
  Sender: FDA-Public Use
  Company Number: FR-ELI_LILLY_AND_COMPANY-FR201307006428

PATIENT
  Sex: Female
  Weight: 61 kg

DRUGS (2)
  1. OPTRUMA [Suspect]
     Indication: OSTEOPOROSIS
     Dosage: UNK, QD
     Route: 048
     Dates: start: 20070702, end: 201306
  2. CALCITE D [Concomitant]

REACTIONS (1)
  - Endometrial adenocarcinoma [Not Recovered/Not Resolved]
